FAERS Safety Report 8156167-5 (Version None)
Quarter: 2012Q1

REPORT INFORMATION
  Report Type: 
  Country: None (occurrence: None)
  Receive Date: 20120222
  Receipt Date: 20120208
  Transmission Date: 20120608
  Serious: Yes (Death, Hospitalization)
  Sender: FDA-Public Use
  Company Number: ES-MYLANLABS-2012S1003001

PATIENT
  Age: 73 Year
  Sex: Female

DRUGS (8)
  1. ROSUVASTATIN [Interacting]
     Indication: HYPERTRIGLYCERIDAEMIA
     Dosage: 20 MG/24HR
     Route: 065
  2. FENOFIBRATE [Suspect]
     Indication: HYPERCHOLESTEROLAEMIA
     Dosage: 160 MG/24HR
     Route: 065
  3. AMIODARONE HCL [Interacting]
     Dosage: 200 MG/24HR
     Route: 065
  4. FENOFIBRATE [Interacting]
     Indication: HYPERTRIGLYCERIDAEMIA
     Dosage: 160 MG/24HR
     Route: 065
  5. ROSUVASTATIN [Interacting]
     Indication: HYPERCHOLESTEROLAEMIA
     Dosage: 20 MG/24HR
     Route: 065
  6. ACENOCOUMAROL [Concomitant]
     Dosage: AS PRESCRIBED
     Route: 065
  7. LEVOTHYROXINE SODIUM [Concomitant]
     Dosage: 75 MICROG/24HR
     Route: 065
  8. LEKOVIT CA [Concomitant]
     Dosage: 1250MG/400U /24HR
     Route: 065

REACTIONS (3)
  - HEPATIC FAILURE [None]
  - RHABDOMYOLYSIS [None]
  - DRUG INTERACTION [None]
